FAERS Safety Report 5270413-7 (Version None)
Quarter: 2007Q1

REPORT INFORMATION
  Report Type: 
  Country: None (occurrence: None)
  Receive Date: 20070320
  Receipt Date: 20070308
  Transmission Date: 20070707
  Serious: Yes (Hospitalization, Disabling)
  Sender: FDA-Public Use
  Company Number: NO-PFIZER INC-2007018852

PATIENT
  Age: 56 Year
  Sex: Female

DRUGS (4)
  1. LYRICA [Suspect]
     Indication: NEURALGIA
     Route: 048
     Dates: start: 20070303, end: 20070307
  2. LYRICA [Suspect]
     Indication: CANCER PAIN
  3. DOLCONTIN [Concomitant]
     Indication: PAIN
     Route: 048
  4. MEDROL [Concomitant]
     Route: 048

REACTIONS (9)
  - AGGRESSION [None]
  - AMNESIA [None]
  - DISORIENTATION [None]
  - DISSOCIATION [None]
  - FATIGUE [None]
  - HALLUCINATION, VISUAL [None]
  - INCONTINENCE [None]
  - SOMNOLENCE [None]
  - SUSPICIOUSNESS [None]
